FAERS Safety Report 18118967 (Version 1)
Quarter: 2020Q3

REPORT INFORMATION
  Report Type: Report from Study
  Country: US (occurrence: US)
  Receive Date: 20200806
  Receipt Date: 20200806
  Transmission Date: 20201103
  Serious: Yes (Death)
  Sender: FDA-Public Use
  Company Number: US-ADAMAS PHARMA, LLC-2020ADA01425

PATIENT
  Age: 74 Year
  Sex: Female

DRUGS (31)
  1. GABAPENTIN. [Concomitant]
     Active Substance: GABAPENTIN
  2. NAMZARIC [Concomitant]
     Active Substance: DONEPEZIL HYDROCHLORIDE\MEMANTINE HYDROCHLORIDE
  3. POTASSIUM CHLORIDE MICRO [Concomitant]
  4. GOCOVRI [Suspect]
     Active Substance: AMANTADINE
     Indication: DYSKINESIA
     Dosage: 137 MG, 1X/DAY AT BEDTIME
     Route: 048
     Dates: start: 20200523, end: 20200529
  5. GOCOVRI [Suspect]
     Active Substance: AMANTADINE
     Dosage: 274 MG, 1X/DAY AT BEDTIME
     Route: 048
     Dates: start: 20200530, end: 2020
  6. DULOXETINE. [Concomitant]
     Active Substance: DULOXETINE
  7. SELENIUM [Concomitant]
     Active Substance: SELENIUM
  8. CARBIDOPA/LEVODOPA [Concomitant]
     Active Substance: CARBIDOPA\LEVODOPA
  9. ENTACAPONE. [Concomitant]
     Active Substance: ENTACAPONE
  10. FUROSEMIDE. [Concomitant]
     Active Substance: FUROSEMIDE
  11. LEVOTHYROXINE. [Concomitant]
     Active Substance: LEVOTHYROXINE
  12. METFORMIN [Concomitant]
     Active Substance: METFORMIN HYDROCHLORIDE
  13. VALASARTAN/HCTZ [Concomitant]
  14. AZILECT [Concomitant]
     Active Substance: RASAGILINE MESYLATE
  15. QUETIAPINE. [Concomitant]
     Active Substance: QUETIAPINE
  16. ASPIRIN. [Concomitant]
     Active Substance: ASPIRIN
  17. MYRBETRIQ [Concomitant]
     Active Substance: MIRABEGRON
  18. VITAMIN D3 [Concomitant]
     Active Substance: CHOLECALCIFEROL
  19. ALPRAZOLAM. [Concomitant]
     Active Substance: ALPRAZOLAM
  20. AMANTADINE. [Concomitant]
     Active Substance: AMANTADINE HYDROCHLORIDE
  21. FOLIC ACID. [Concomitant]
     Active Substance: FOLIC ACID
  22. IRON [Concomitant]
     Active Substance: IRON
  23. JANUVIA [Concomitant]
     Active Substance: SITAGLIPTIN PHOSPHATE
  24. NYSTOP [Concomitant]
     Active Substance: NYSTATIN
  25. ATORVASTATIN [Concomitant]
     Active Substance: ATORVASTATIN
  26. CALCIUM/D [Concomitant]
  27. METOPROLOL TARTRATE. [Concomitant]
     Active Substance: METOPROLOL TARTRATE
  28. OMEPRAZOLE. [Concomitant]
     Active Substance: OMEPRAZOLE
  29. BACLOFEN. [Concomitant]
     Active Substance: BACLOFEN
  30. HYDROCODONE BITARTRATE AND ACETAMINOPHEN [Concomitant]
     Active Substance: ACETAMINOPHEN\HYDROCODONE BITARTRATE
  31. NAC [Concomitant]

REACTIONS (2)
  - Headache [Recovering/Resolving]
  - Death [Fatal]

NARRATIVE: CASE EVENT DATE: 202005
